FAERS Safety Report 25871196 (Version 1)
Quarter: 2025Q4

REPORT INFORMATION
  Report Type: Spontaneous
  Country: US (occurrence: None)
  Receive Date: 20251001
  Receipt Date: 20251001
  Transmission Date: 20260117
  Serious: Yes (Hospitalization)
  Sender: FDA-CTU
  Company Number: None

PATIENT
  Age: 37 Year
  Sex: Male

DRUGS (1)
  1. WEGOVY [Suspect]
     Active Substance: SEMAGLUTIDE
     Indication: Weight decreased
     Dosage: 1 MG WEEKLY SUBCUTANEOUS
     Route: 058
     Dates: start: 20250226

REACTIONS (2)
  - Rhabdomyolysis [None]
  - Muscle atrophy [None]

NARRATIVE: CASE EVENT DATE: 20250927
